FAERS Safety Report 17556805 (Version 1)
Quarter: 2020Q1

REPORT INFORMATION
  Report Type: Report from Study
  Country: GB (occurrence: GB)
  Receive Date: 20200318
  Receipt Date: 20200318
  Transmission Date: 20200409
  Serious: Yes (Hospitalization)
  Sender: FDA-Public Use
  Company Number: GB-EISAI MEDICAL RESEARCH-EC-2020-071786

PATIENT
  Age: 14 Year
  Sex: Male
  Weight: 58.8 kg

DRUGS (5)
  1. METOCLOPRAMIDE. [Concomitant]
     Active Substance: METOCLOPRAMIDE
  2. ERIBULIN [Suspect]
     Active Substance: ERIBULIN
     Indication: DESMOPLASTIC SMALL ROUND CELL TUMOUR
     Route: 042
     Dates: start: 20200206
  3. DEXAMETHASONE. [Concomitant]
     Active Substance: DEXAMETHASONE
  4. IRINOTECAN [Suspect]
     Active Substance: IRINOTECAN
     Indication: DESMOPLASTIC SMALL ROUND CELL TUMOUR
     Route: 041
     Dates: start: 20200206
  5. CIFIXIME [Concomitant]
     Active Substance: CEFIXIME

REACTIONS (1)
  - Febrile neutropenia [Recovering/Resolving]

NARRATIVE: CASE EVENT DATE: 20200307
